FAERS Safety Report 5711074-X (Version None)
Quarter: 2008Q2

REPORT INFORMATION
  Report Type: 
  Country: None (occurrence: None)
  Receive Date: 20080421
  Receipt Date: 20080408
  Transmission Date: 20081010
  Serious: Yes (Other)
  Sender: FDA-Public Use
  Company Number: JP-NOVOPROD-273910

PATIENT
  Sex: Female
  Weight: 60 kg

DRUGS (11)
  1. NOVORAPID CHU FLEXPEN [Suspect]
     Indication: TYPE 1 DIABETES MELLITUS
     Dosage: 36 IU, QD
     Route: 058
     Dates: start: 20070511, end: 20080318
  2. HUMALOG [Concomitant]
     Indication: TYPE 1 DIABETES MELLITUS
  3. NOVOLIN R [Concomitant]
     Indication: TYPE 1 DIABETES MELLITUS
  4. LOCHOL                             /01224502/ [Concomitant]
     Route: 048
     Dates: start: 20061208
  5. LASIX [Concomitant]
     Route: 048
     Dates: start: 20061208
  6. AMLODIPIN                          /00972402/ [Concomitant]
     Route: 048
     Dates: start: 20061208
  7. TANATRIL [Concomitant]
     Route: 048
     Dates: start: 20061208
  8. ALDACTONE [Concomitant]
     Route: 048
     Dates: start: 20061208
  9. ASPIRIN [Concomitant]
     Route: 048
     Dates: start: 20070514
  10. PLAVIX [Concomitant]
     Route: 048
     Dates: start: 20070530
  11. BASEN [Concomitant]
     Route: 048
     Dates: start: 20061208

REACTIONS (4)
  - DRUG HYPERSENSITIVITY [None]
  - INJECTION SITE INDURATION [None]
  - LOSS OF CONSCIOUSNESS [None]
  - RASH [None]
